FAERS Safety Report 9664217 (Version 2)
Quarter: 2013Q4

REPORT INFORMATION
  Report Type: Spontaneous
  Country: FR (occurrence: FR)
  Receive Date: 20131101
  Receipt Date: 20131115
  Transmission Date: 20140711
  Serious: Yes (Hospitalization)
  Sender: FDA-Public Use
  Company Number: FR-SA-2013SA109267

PATIENT
  Age: 68 Year
  Sex: Male

DRUGS (8)
  1. LASILIX [Suspect]
     Indication: HYPERTENSION
     Route: 048
     Dates: start: 201303
  2. APROVEL [Suspect]
     Indication: HYPERTENSION
     Route: 048
     Dates: start: 201204
  3. RAPAMUNE [Suspect]
     Indication: PROPHYLAXIS AGAINST TRANSPLANT REJECTION
     Route: 048
     Dates: start: 201304, end: 20130910
  4. CELLCEPT [Suspect]
     Indication: PROPHYLAXIS AGAINST TRANSPLANT REJECTION
     Route: 048
     Dates: start: 200904
  5. TAHOR [Suspect]
     Indication: HYPERCHOLESTEROLAEMIA
     Route: 048
     Dates: start: 201103
  6. AMLOR [Suspect]
     Indication: HYPERTENSION
     Route: 048
     Dates: start: 201103
  7. AUGMENTIN [Concomitant]
     Indication: PYREXIA
  8. AUGMENTIN [Concomitant]
     Indication: HEADACHE

REACTIONS (4)
  - Interstitial lung disease [Recovering/Resolving]
  - Headache [Recovering/Resolving]
  - Pyrexia [Recovering/Resolving]
  - Cough [Recovering/Resolving]
